FAERS Safety Report 4451519-9 (Version None)
Quarter: 2004Q3

REPORT INFORMATION
  Report Type: 
  Country: None (occurrence: None)
  Receive Date: 20040915
  Receipt Date: 20040901
  Transmission Date: 20050211
  Serious: No
  Sender: FDA-Public Use
  Company Number: 04H-163-0272285-00

PATIENT
  Age: 38 Year
  Weight: 90 kg

DRUGS (6)
  1. ETOMIDATE [Suspect]
     Indication: ANAESTHESIA
     Dosage: 15 MG, NOT REPORTED, NOT
  2. VECURONIUM BROMIDE [Concomitant]
  3. FENTANYL [Concomitant]
  4. OXYGEN [Concomitant]
  5. LIDOCAINE [Concomitant]
  6. SODIUM NITROPRUSSIDE [Concomitant]

REACTIONS (8)
  - ANAESTHETIC COMPLICATION [None]
  - CONDITION AGGRAVATED [None]
  - EYE EXCISION [None]
  - EYE HAEMORRHAGE [None]
  - HYPERTENSION [None]
  - MYOCLONUS [None]
  - RETINAL DETACHMENT [None]
  - VITREOUS PROLAPSE [None]
